FAERS Safety Report 15408166 (Version 1)
Quarter: 2018Q3

REPORT INFORMATION
  Report Type: Spontaneous
  Country: ES (occurrence: ES)
  Receive Date: 20180920
  Receipt Date: 20180920
  Transmission Date: 20181010
  Serious: Yes (Other)
  Sender: FDA-Public Use
  Company Number: ES-JNJFOC-20180907421

PATIENT
  Age: 66 Year
  Sex: Male

DRUGS (1)
  1. IMBRUVICA [Suspect]
     Active Substance: IBRUTINIB
     Indication: CHRONIC LYMPHOCYTIC LEUKAEMIA
     Route: 048

REACTIONS (5)
  - Neoplasm malignant [Unknown]
  - Hypercalcaemia [Recovered/Resolved]
  - Pulmonary mass [Unknown]
  - Weight decreased [Recovered/Resolved]
  - Blood parathyroid hormone abnormal [Unknown]
